FAERS Safety Report 7544354-6 (Version None)
Quarter: 2011Q2

REPORT INFORMATION
  Report Type: 
  Country: None (occurrence: None)
  Receive Date: 20110613
  Receipt Date: 20080303
  Transmission Date: 20111010
  Serious: Yes (Other)
  Sender: FDA-Public Use
  Company Number: PHHY2008BR02645

PATIENT
  Sex: Female
  Weight: 70 kg

DRUGS (7)
  1. TRILEPTAL [Suspect]
     Dosage: 300 MG, UNK
     Route: 048
  2. VITAMIN E [Concomitant]
     Route: 048
  3. TRILEPTAL [Suspect]
     Dosage: 150 MG, UNK
     Route: 048
  4. FOLIC ACID [Concomitant]
     Dosage: UNK, UNK
     Route: 048
  5. ILOBAN [Concomitant]
     Route: 048
  6. TRILEPTAL [Suspect]
     Indication: CONVULSION
     Dosage: 600 MG, UNK
     Route: 048
  7. ASCORBIC ACID [Concomitant]
     Route: 048

REACTIONS (3)
  - PREGNANCY [None]
  - DRUG EXPOSURE DURING PREGNANCY [None]
  - ABORTION SPONTANEOUS [None]
